FAERS Safety Report 6089937-8 (Version None)
Quarter: 2009Q1

REPORT INFORMATION
  Report Type: 
  Country: None (occurrence: None)
  Receive Date: 20090224
  Receipt Date: 20081217
  Transmission Date: 20090719
  Serious: No
  Sender: FDA-Public Use
  Company Number: US-ABBOTT-08P-163-0489817-00

PATIENT
  Sex: Female
  Weight: 64.014 kg

DRUGS (3)
  1. SIMCOR [Suspect]
     Indication: BLOOD CHOLESTEROL INCREASED
     Dosage: 500/20
     Route: 048
     Dates: start: 20080901, end: 20080901
  2. ACETYLSALICYLIC ACID SRT [Concomitant]
     Indication: PROPHYLAXIS
     Route: 048
  3. ACETYLSALICYLIC ACID SRT [Concomitant]
     Indication: FLUSHING

REACTIONS (2)
  - CHILLS [None]
  - SKIN BURNING SENSATION [None]
